FAERS Safety Report 11114241 (Version 2)
Quarter: 2015Q3

REPORT INFORMATION
  Report Type: Report from Study
  Country: US (occurrence: US)
  Receive Date: 20150514
  Receipt Date: 20150831
  Transmission Date: 20151125
  Serious: Yes (Other)
  Sender: FDA-Public Use
  Company Number: US-GILEAD-2015-0152799

PATIENT
  Age: 73 Year
  Sex: Female

DRUGS (3)
  1. TYVASO [Concomitant]
     Active Substance: TREPROSTINIL
  2. AMBRISENTAN [Suspect]
     Active Substance: AMBRISENTAN
     Indication: SCLERODERMA
     Dosage: 10 MG, QD
     Route: 065
     Dates: start: 20091104
  3. AMBRISENTAN [Suspect]
     Active Substance: AMBRISENTAN
     Indication: PULMONARY HYPERTENSION

REACTIONS (4)
  - Dizziness postural [Unknown]
  - Fatigue [Unknown]
  - Haemoglobin abnormal [Unknown]
  - Large intestinal haemorrhage [Unknown]
